FAERS Safety Report 7752866-5 (Version None)
Quarter: 2011Q3

REPORT INFORMATION
  Report Type: 
  Country: None (occurrence: None)
  Receive Date: 20110915
  Receipt Date: 20110913
  Transmission Date: 20111222
  Serious: Yes (Life-Threatening)
  Sender: FDA-Public Use
  Company Number: PHHY2011FR39284

PATIENT
  Age: 50 Year
  Sex: Female
  Weight: 51 kg

DRUGS (1)
  1. EXTAVIA [Suspect]
     Dosage: UNK
     Route: 058

REACTIONS (3)
  - DIPLOPIA [None]
  - URINARY INCONTINENCE [None]
  - ABDOMINAL PAIN [None]
